FAERS Safety Report 12709488 (Version 1)
Quarter: 2016Q3

REPORT INFORMATION
  Report Type: Spontaneous
  Country: US (occurrence: None)
  Receive Date: 20160901
  Receipt Date: 20160901
  Transmission Date: 20161109
  Serious: Yes (Hospitalization)
  Sender: FDA-Public Use
  Company Number: None

PATIENT
  Age: 78 Year
  Sex: Female
  Weight: 62 kg

DRUGS (4)
  1. TC-99M SESTIMIBI, 10MCI AND 25MCI [Suspect]
     Active Substance: TECHNETIUM TC-99M SESTAMIBI
     Indication: CARDIAC STRESS TEST
     Dosage: DIAGNOSTIC TEST INTRAVENOUS BOLUS
     Route: 040
     Dates: start: 20160815, end: 20160815
  2. LEXISCAN [Suspect]
     Active Substance: REGADENOSON
     Indication: CARDIAC STRESS TEST
     Route: 040
     Dates: start: 20160815, end: 20160815
  3. SODIUM CHLORIDE FLUSH [Concomitant]
     Active Substance: SODIUM CHLORIDE
  4. REGADENOSON (LEXISCAN) [Concomitant]

REACTIONS (13)
  - Dizziness [None]
  - Chills [None]
  - Hypoxia [None]
  - Nausea [None]
  - Vomiting [None]
  - Pain [None]
  - Atrial fibrillation [None]
  - Tachycardia [None]
  - Pyrexia [None]
  - Pseudomonas test positive [None]
  - Blood lactic acid increased [None]
  - Sepsis [None]
  - Bacteraemia [None]

NARRATIVE: CASE EVENT DATE: 20160820
